FAERS Safety Report 9312251 (Version 1)
Quarter: 2013Q1

REPORT INFORMATION
  Report Type: Spontaneous
  Country: US (occurrence: None)
  Receive Date: 20130214
  Receipt Date: 20130214
  Transmission Date: 20140127
  Serious: Yes (Life-Threatening, Hospitalization)
  Sender: FDA-Public Use
  Company Number: PIR CC400157257

PATIENT
  Age: 61 Year
  Sex: Male

DRUGS (20)
  1. DEXTROSE [Suspect]
  2. VICODIN [Concomitant]
  3. FLOMAX [Concomitant]
  4. TAMSULOSIN [Concomitant]
  5. CISPLATIN [Concomitant]
  6. INVESTIGATIONAL DRUG S-L: (TEGAFUR, GIMERACIL + OTERACIL) [Concomitant]
  7. ONDANSETRON [Concomitant]
  8. LORAZEPAM [Concomitant]
  9. FOSAPREPITANT [Concomitant]
  10. DEXAMETHASONE [Concomitant]
  11. MAGNESIUM SULFATE [Concomitant]
  12. MULTIVITAMIN [Concomitant]
  13. CEFEPIME [Concomitant]
  14. VANCOMYCIN [Concomitant]
  15. 0.9% NACL INJECTION [Concomitant]
  16. SODIUM PHOSPHATE MONOBASIC ENEMA [Concomitant]
  17. ISOSOURCE-CARBOHYDRATES [Concomitant]
  18. PANTOPRAZOLE [Concomitant]
  19. SENNA [Concomitant]
  20. MAGNESIUM CITRATE [Concomitant]

REACTIONS (7)
  - Ascites [None]
  - Sinus bradycardia [None]
  - Dyspnoea [None]
  - Abdominal distension [None]
  - Condition aggravated [None]
  - Malignant neoplasm progression [None]
  - Pulmonary mass [None]
